FAERS Safety Report 21851104 (Version 3)
Quarter: 2023Q1

REPORT INFORMATION
  Report Type: Spontaneous
  Country: FR (occurrence: FR)
  Receive Date: 20230112
  Receipt Date: 20230309
  Transmission Date: 20230418
  Serious: Yes (Hospitalization)
  Sender: FDA-Public Use
  Company Number: None

PATIENT
  Age: 82 Year
  Sex: Female
  Weight: 73 kg

DRUGS (13)
  1. PAROXETINE MESYLATE [Suspect]
     Active Substance: PAROXETINE MESYLATE
     Indication: Mixed anxiety and depressive disorder
     Dosage: UNIT DOSE : 40 MG, FREQUENCY TIME : 1 DAY
     Route: 065
     Dates: end: 20221130
  2. IRBESARTAN [Suspect]
     Active Substance: IRBESARTAN
     Indication: Hypertension
     Dosage: UNIT DOSE : 150 MG, FREQUENCY TIME : 1 DAY
     Route: 065
     Dates: end: 20221130
  3. PROPRANOLOL [Suspect]
     Active Substance: PROPRANOLOL HYDROCHLORIDE
     Indication: Migraine
     Dosage: UNIT DOSE : 160 MG, FREQUENCY TIME : 1 DAY
     Route: 065
     Dates: end: 20221130
  4. CEFUROXIME SODIUM [Suspect]
     Active Substance: CEFUROXIME SODIUM
     Indication: Infection prophylaxis
     Dosage: DURATION :  1 DAY
     Route: 065
     Dates: start: 20221125, end: 20221125
  5. OCUFEN [Suspect]
     Active Substance: FLURBIPROFEN SODIUM
     Indication: Cataract operation
     Dosage: UNIT DOSE :3 GTT, STRENGTH : 0.03 PERCENT, FREQUENCY TIME : 1 DAY, DURATION : 5 DAYS
     Route: 065
     Dates: start: 20221125, end: 20221130
  6. TROPICAMIDE [Suspect]
     Active Substance: TROPICAMIDE
     Indication: Cataract operation
     Dosage: STRENGTH : 2 MG/0.4 ML, EYE DROPS IN A SINGLE-DOSE CONTAINER, UNIT DOSE :3 GTT, FREQUENCY TIME : 1 D
     Route: 065
     Dates: start: 20221125, end: 20221130
  7. PROPOFOL [Suspect]
     Active Substance: PROPOFOL
     Indication: General anaesthesia
     Dosage: DURATION : 1 DAY
     Route: 065
     Dates: start: 20221125, end: 20221125
  8. CARBOCAINE [Suspect]
     Active Substance: MEPIVACAINE HYDROCHLORIDE
     Indication: Anaesthesia eye
     Dosage: STRENGTH : 2 PER CENT (0.4 G/20 ML), UNIT DOSE : 6 ML, FREQUENCY TIME : 1 TOTAL , DURATION : 1 DAY
     Route: 065
     Dates: start: 20221125, end: 20221125
  9. DEXAMETHASONE\OXYTETRACYCLINE [Suspect]
     Active Substance: DEXAMETHASONE\OXYTETRACYCLINE
     Indication: Postoperative care
     Dosage: DURATION :  1 DAY, EYE OINTMENT IN A SINGLE-DOSE CONTAINER
     Route: 065
     Dates: start: 20221125, end: 20221125
  10. ALPRAZOLAM [Concomitant]
     Active Substance: ALPRAZOLAM
     Indication: Product used for unknown indication
  11. OMEPRAZOLE [Concomitant]
     Active Substance: OMEPRAZOLE
     Indication: Product used for unknown indication
  12. ACETAMINOPHEN [Concomitant]
     Active Substance: ACETAMINOPHEN
     Indication: Product used for unknown indication
  13. CALCIUM CARBONATE\CHOLECALCIFEROL [Concomitant]
     Active Substance: CALCIUM CARBONATE\CHOLECALCIFEROL
     Indication: Product used for unknown indication

REACTIONS (2)
  - Acute kidney injury [Recovered/Resolved]
  - Confusional state [Recovered/Resolved]

NARRATIVE: CASE EVENT DATE: 20221127
